FAERS Safety Report 8888147 (Version 1)
Quarter: 2012Q4

REPORT INFORMATION
  Report Type: 
  Country: US (occurrence: US)
  Receive Date: 20121106
  Receipt Date: 20121106
  Transmission Date: 20130627
  Serious: Yes (Other)
  Sender: FDA-Public Use
  Company Number: US-BAYER-2012-113144

PATIENT
  Age: 44 Year
  Sex: Female
  Weight: 136.5 kg

DRUGS (4)
  1. BETASERON [Suspect]
     Indication: MULTIPLE SCLEROSIS
     Dosage: 8 miu, QOD
     Route: 058
     Dates: start: 20120120
  2. ANTI-DIABETICS [Concomitant]
     Indication: NON-INSULIN-DEPENDENT DIABETES MELLITUS
     Route: 048
  3. CORTICOSTEROIDS [Concomitant]
     Indication: ASTHMA
  4. ANTI-ASTHMATICS [Concomitant]
     Indication: ASTHMA

REACTIONS (4)
  - Abnormal loss of weight [Not Recovered/Not Resolved]
  - Decreased appetite [Not Recovered/Not Resolved]
  - Vomiting [Not Recovered/Not Resolved]
  - Asthma [Recovering/Resolving]
